FAERS Safety Report 25314445 (Version 1)
Quarter: 2025Q2

REPORT INFORMATION
  Report Type: Spontaneous
  Country: US (occurrence: None)
  Receive Date: 20250513
  Receipt Date: 20250513
  Transmission Date: 20250717
  Serious: Yes (Other)
  Sender: FDA-CTU
  Company Number: None

PATIENT
  Age: 43 Year
  Sex: Male
  Weight: 90.72 kg

DRUGS (1)
  1. OCREVUS [Suspect]
     Active Substance: OCRELIZUMAB
     Route: 041
     Dates: start: 20250513, end: 20250513

REACTIONS (4)
  - Feeling hot [None]
  - Muscle spasms [None]
  - Musculoskeletal stiffness [None]
  - Infusion related reaction [None]

NARRATIVE: CASE EVENT DATE: 20250513
